FAERS Safety Report 7611726-0 (Version None)
Quarter: 2011Q3

REPORT INFORMATION
  Report Type: 
  Country: None (occurrence: None)
  Receive Date: 20110715
  Receipt Date: 20110630
  Transmission Date: 20111222
  Serious: Yes (Death, Other)
  Sender: FDA-Public Use
  Company Number: US-CELGENEUS-163-21660-11071462

PATIENT

DRUGS (3)
  1. CARBOPLATIN [Suspect]
     Route: 065
  2. ABRAXANE [Suspect]
     Dosage: 260 MILLIGRAM/SQ. METER
     Route: 065
  3. ABRAXANE [Suspect]
     Dosage: 300 MILLIGRAM/SQ. METER
     Route: 065

REACTIONS (1)
  - DEATH [None]
